FAERS Safety Report 6434141-4 (Version None)
Quarter: 2009Q4

REPORT INFORMATION
  Report Type: 
  Country: None (occurrence: None)
  Receive Date: 20091110
  Receipt Date: 20090728
  Transmission Date: 20100525
  Serious: No
  Sender: FDA-Public Use
  Company Number: US-ASTRAZENECA-2009SE10232

PATIENT
  Sex: Female

DRUGS (5)
  1. PRILOSEC OTC [Suspect]
     Indication: GASTROOESOPHAGEAL REFLUX DISEASE
     Dosage: 1 TABLET, BEDTIME
     Route: 048
     Dates: start: 20090721
  2. PLAVIX [Concomitant]
  3. NU IRON [Concomitant]
     Dosage: UNKNOWN
  4. VITAMINS [Concomitant]
     Dosage: UNKNOWN
  5. ZELCOR [Concomitant]
     Dosage: UNKNOWN

REACTIONS (2)
  - DIARRHOEA [None]
  - INAPPROPRIATE SCHEDULE OF DRUG ADMINISTRATION [None]
